FAERS Safety Report 22634239 (Version 1)
Quarter: 2023Q2

REPORT INFORMATION
  Report Type: Spontaneous
  Country: US (occurrence: US)
  Receive Date: 20230623
  Receipt Date: 20230623
  Transmission Date: 20230721
  Serious: No
  Sender: FDA-Public Use
  Company Number: US-PFIZER INC-202300224837

PATIENT
  Sex: Female

DRUGS (1)
  1. NURTEC ODT [Suspect]
     Active Substance: RIMEGEPANT SULFATE
     Indication: Migraine
     Dosage: 75 MG
     Dates: start: 20230615, end: 20230615

REACTIONS (3)
  - Swelling face [Unknown]
  - Swelling [Unknown]
  - Skin discolouration [Unknown]

NARRATIVE: CASE EVENT DATE: 20230615
